FAERS Safety Report 8836219 (Version 4)
Quarter: 2012Q4

REPORT INFORMATION
  Report Type: 
  Country: US (occurrence: US)
  Receive Date: 20121011
  Receipt Date: 20121206
  Transmission Date: 20130627
  Serious: Yes (Other)
  Sender: FDA-Public Use
  Company Number: US-PFIZER INC-2012250701

PATIENT
  Age: 57 Year
  Sex: Male

DRUGS (4)
  1. PROTONIX [Suspect]
     Indication: GERD
     Dosage: 40 mg, 1x/day
     Route: 048
     Dates: start: 20120829
  2. PLAVIX [Concomitant]
     Dosage: UNK
  3. PRAVACHOL [Concomitant]
     Dosage: UNK
  4. METOPROLOL [Concomitant]
     Dosage: UNK

REACTIONS (1)
  - Coronary artery disease [Unknown]
